FAERS Safety Report 18081150 (Version 2)
Quarter: 2020Q3

REPORT INFORMATION
  Report Type: Spontaneous
  Country: MX (occurrence: MX)
  Receive Date: 20200728
  Receipt Date: 20200730
  Transmission Date: 20201103
  Serious: Yes (Other)
  Sender: FDA-Public Use
  Company Number: MX-ROCHE-2646725

PATIENT

DRUGS (5)
  1. OLOPATADINE. [Suspect]
     Active Substance: OLOPATADINE
     Indication: PRODUCT USED FOR UNKNOWN INDICATION
     Dosage: 1 UNK (IN EACH EYE, EVERY 12 HOURS)
     Route: 047
  2. OMALIZUMAB. [Suspect]
     Active Substance: OMALIZUMAB
     Indication: URTICARIA
     Dosage: UNK
     Route: 065
  3. SODIUM HYALURONATE [Concomitant]
     Active Substance: HYALURONATE SODIUM
     Indication: PRODUCT USED FOR UNKNOWN INDICATION
     Dosage: EVERY 8 HOURS
     Route: 047
  4. OMALIZUMAB. [Suspect]
     Active Substance: OMALIZUMAB
     Indication: EYE ALLERGY
     Dosage: UNK
     Route: 065
  5. OMALIZUMAB. [Suspect]
     Active Substance: OMALIZUMAB
     Dosage: UNK
     Route: 065

REACTIONS (8)
  - Arthralgia [Unknown]
  - Peripheral venous disease [Unknown]
  - Skin discolouration [Unknown]
  - Weight increased [Unknown]
  - Ear pain [Unknown]
  - Fluid retention [Unknown]
  - Fatigue [Unknown]
  - Peripheral swelling [Unknown]
